FAERS Safety Report 7049346-1 (Version None)
Quarter: 2010Q4

REPORT INFORMATION
  Report Type: 
  Country: None (occurrence: None)
  Receive Date: 20101007
  Receipt Date: 20100923
  Transmission Date: 20110411
  Serious: Yes (Other)
  Sender: FDA-Public Use
  Company Number: AUR-APU-2010-02373

PATIENT
  Age: 69 Year
  Sex: Male

DRUGS (1)
  1. GLYBURIDE AND METFORMIN HYDROCHLORIDE [Suspect]
     Dosage: 1 TABLET
     Dates: start: 20100818

REACTIONS (3)
  - ERYTHEMA [None]
  - PRURITUS [None]
  - SKIN SWELLING [None]
